FAERS Safety Report 15060648 (Version 2)
Quarter: 2018Q3

REPORT INFORMATION
  Report Type: Spontaneous
  Country: PT (occurrence: PT)
  Receive Date: 20180625
  Receipt Date: 20180705
  Transmission Date: 20181010
  Serious: Yes (Other)
  Sender: FDA-Public Use
  Company Number: PT-TAKEDA-2018TUS020329

PATIENT
  Age: 82 Year
  Sex: Male
  Weight: 65 kg

DRUGS (3)
  1. ENTYVIO [Suspect]
     Active Substance: VEDOLIZUMAB
     Indication: CROHN^S DISEASE
     Dosage: 300MG  ACTUALMENTE SOB TERAP?UTICA DE 4 EM 4 SEMANAS
     Route: 042
     Dates: start: 20171219
  2. LEPICORTINOLO                      /00016201/ [Concomitant]
     Active Substance: PREDNISOLONE
     Dosage: 20 MG, QD
  3. VALGANCICLOVIR. [Concomitant]
     Active Substance: VALGANCICLOVIR
     Indication: CYTOMEGALOVIRUS COLITIS
     Dosage: 900 MG, QD
     Route: 048
     Dates: start: 2017

REACTIONS (2)
  - Flatulence [Unknown]
  - Abdominal discomfort [Unknown]

NARRATIVE: CASE EVENT DATE: 20180327
